FAERS Safety Report 9760321 (Version 1)
Quarter: 2013Q4

REPORT INFORMATION
  Report Type: Spontaneous
  Country: US (occurrence: US)
  Receive Date: 20131216
  Receipt Date: 20131216
  Transmission Date: 20140711
  Serious: No
  Sender: FDA-Public Use
  Company Number: US-GILEAD-2010-0029189

PATIENT
  Sex: Female
  Weight: 95.25 kg

DRUGS (17)
  1. LETAIRIS [Suspect]
     Indication: PULMONARY ARTERIAL HYPERTENSION
     Route: 048
     Dates: start: 20081128
  2. AMOXICILLIN [Concomitant]
  3. METOPROLOL [Concomitant]
  4. ALLOPURINOL [Concomitant]
  5. ARANESP [Concomitant]
  6. AMBIEN [Concomitant]
  7. ROBAXIN [Concomitant]
  8. LASIX [Concomitant]
  9. METOLAZONE [Concomitant]
  10. ISOSORBIDE DN [Concomitant]
  11. ASPIRIN [Concomitant]
  12. RIBOFLAVIN [Concomitant]
  13. MULTIVITAMIN [Concomitant]
  14. POTASSIUM CHLORIDE [Concomitant]
  15. CALCIUM [Concomitant]
  16. FISH OIL [Concomitant]
  17. VITAMIN B-12 [Concomitant]

REACTIONS (1)
  - Neuralgia [Unknown]
